FAERS Safety Report 20443867 (Version 1)
Quarter: 2022Q1

REPORT INFORMATION
  Report Type: Spontaneous
  Country: US (occurrence: US)
  Receive Date: 20220208
  Receipt Date: 20220208
  Transmission Date: 20220424
  Serious: No
  Sender: FDA-Public Use
  Company Number: US-GLAXOSMITHKLINE-US2022018844

PATIENT
  Sex: Male

DRUGS (4)
  1. ALBUTEROL [Suspect]
     Active Substance: ALBUTEROL
     Indication: COVID-19 pneumonia
     Dosage: 2 PUFF(S), Z  AS NEEDED UP TO 4 TIMES PER DAY
     Route: 055
     Dates: start: 20220125
  2. ADVAIR HFA [Suspect]
     Active Substance: FLUTICASONE PROPIONATE\SALMETEROL XINAFOATE
     Indication: COVID-19 pneumonia
     Dosage: UNK
  3. LEVAQUIN [Concomitant]
     Active Substance: LEVOFLOXACIN
     Indication: Pneumonia bacterial
     Dosage: UNK
     Dates: start: 20220125, end: 20220202
  4. PREDNISONE [Concomitant]
     Active Substance: PREDNISONE
     Indication: COVID-19 pneumonia
     Dosage: 10 MG, QD
     Dates: start: 20220202

REACTIONS (2)
  - Product use in unapproved indication [Unknown]
  - Off label use [Unknown]
